FAERS Safety Report 7629669-5 (Version None)
Quarter: 2011Q3

REPORT INFORMATION
  Report Type: 
  Country: None (occurrence: None)
  Receive Date: 20110722
  Receipt Date: 20110712
  Transmission Date: 20111222
  Serious: Yes (Hospitalization)
  Sender: FDA-Public Use
  Company Number: FR-ROCHE-789381

PATIENT
  Sex: Female

DRUGS (1)
  1. ACTEMRA [Suspect]
     Dosage: FORM: INFUSION, FREQUENCY: ONCE
     Route: 042
     Dates: start: 20110223, end: 20110223

REACTIONS (1)
  - THROMBOCYTOPENIC PURPURA [None]
